FAERS Safety Report 13278091 (Version 2)
Quarter: 2017Q1

REPORT INFORMATION
  Report Type: Spontaneous
  Country: US (occurrence: US)
  Receive Date: 20170228
  Receipt Date: 20170330
  Transmission Date: 20170428
  Serious: No
  Sender: FDA-Public Use
  Company Number: US-PFIZER INC-2017088400

PATIENT
  Age: 58 Year
  Sex: Female

DRUGS (3)
  1. TEA TREE OIL. [Concomitant]
     Active Substance: TEA TREE OIL
     Indication: SINUSITIS
     Dosage: UNK
     Dates: start: 2016
  2. AGILEASE [Concomitant]
     Dosage: UNK
     Dates: start: 201407
  3. XELJANZ [Suspect]
     Active Substance: TOFACITINIB CITRATE
     Indication: RHEUMATOID ARTHRITIS
     Dosage: 5 MG, 2X/DAY
     Dates: start: 201412

REACTIONS (1)
  - Malaise [Recovered/Resolved]

NARRATIVE: CASE EVENT DATE: 20161220
